FAERS Safety Report 5125854-5 (Version None)
Quarter: 2006Q3

REPORT INFORMATION
  Report Type: 
  Country: None (occurrence: None)
  Receive Date: 20060818
  Receipt Date: 20060613
  Transmission Date: 20061208
  Serious: No
  Sender: FDA-Public Use
  Company Number: SPV1-2006-00064

PATIENT
  Sex: Male

DRUGS (1)
  1. FOSRENOL [Suspect]
     Dosage: 1000 MG, SIX TABLETS

REACTIONS (3)
  - ABDOMINAL PAIN UPPER [None]
  - NAUSEA [None]
  - VOMITING [None]
